FAERS Safety Report 12196521 (Version 2)
Quarter: 2016Q1

REPORT INFORMATION
  Report Type: Spontaneous
  Country: IT (occurrence: IT)
  Receive Date: 20160321
  Receipt Date: 20160329
  Transmission Date: 20160526
  Serious: Yes (Hospitalization)
  Sender: FDA-Public Use
  Company Number: IT-SA-2016SA054711

PATIENT
  Age: 65 Year
  Sex: Male
  Weight: 64 kg

DRUGS (6)
  1. EFFEXOR [Concomitant]
     Active Substance: VENLAFAXINE HYDROCHLORIDE
     Indication: DEPRESSION
     Dosage: STRENGTH:75 MG
     Route: 048
  2. ASPIRIN. [Suspect]
     Active Substance: ASPIRIN
     Indication: PYREXIA
     Route: 048
     Dates: start: 20160227, end: 20160227
  3. POTABA [Suspect]
     Active Substance: AMINOBENZOATE POTASSIUM
     Indication: PENIS DISORDER
     Dosage: DOSE: QUANTITY: 2 SACHETS PER DAY DOSE:2 UNIT(S)
     Route: 048
     Dates: start: 20160222, end: 20160228
  4. TRENTAL [Suspect]
     Active Substance: PENTOXIFYLLINE
     Indication: PENIS DISORDER
     Route: 048
     Dates: start: 20160222, end: 20160228
  5. RIGENTEX [Suspect]
     Active Substance: .ALPHA.-TOCOPHEROL ACETATE, D-
     Indication: PENIS DISORDER
     Route: 048
     Dates: start: 20160222, end: 20160228
  6. BIFRIZIDE [Concomitant]
     Active Substance: HYDROCHLOROTHIAZIDE
     Indication: HYPERTENSION
     Dosage: STRENGTH: 30 MG+12.5 MG DOSE:1 UNIT(S)
     Route: 048

REACTIONS (2)
  - Rash macular [Recovering/Resolving]
  - Erythema [Recovering/Resolving]

NARRATIVE: CASE EVENT DATE: 20160228
